FAERS Safety Report 25756040 (Version 3)
Quarter: 2025Q4

REPORT INFORMATION
  Report Type: Spontaneous
  Country: EU (occurrence: EU)
  Receive Date: 20250903
  Receipt Date: 20251013
  Transmission Date: 20260118
  Serious: Yes (Other)
  Sender: PFIZER
  Company Number: None

PATIENT
  Age: 39 Year
  Sex: Female

DRUGS (10)
  1. METHYLPREDNISOLONE SODIUM SUCCINATE [Suspect]
     Active Substance: METHYLPREDNISOLONE SODIUM SUCCINATE
     Indication: Chemotherapy side effect prophylaxis
     Dosage: UNK (C1J15)
     Route: 042
     Dates: start: 20250219, end: 20250219
  2. METHYLPREDNISOLONE SODIUM SUCCINATE [Suspect]
     Active Substance: METHYLPREDNISOLONE SODIUM SUCCINATE
     Dosage: UNK (C2J8)
     Route: 042
     Dates: start: 20250305, end: 20250305
  3. CARBOPLATIN [Suspect]
     Active Substance: CARBOPLATIN
     Indication: Triple negative breast cancer
     Dosage: UNK (C1J15)
     Route: 042
     Dates: start: 20250219, end: 20250219
  4. CARBOPLATIN [Suspect]
     Active Substance: CARBOPLATIN
     Dosage: UNK (C2J8)
     Route: 042
     Dates: start: 20250305, end: 20250305
  5. PACLITAXEL [Suspect]
     Active Substance: PACLITAXEL
     Indication: Triple negative breast cancer
     Dosage: UNK (C1J15)
     Route: 042
     Dates: start: 20250219, end: 20250219
  6. PACLITAXEL [Suspect]
     Active Substance: PACLITAXEL
     Dosage: UNK (C2J8)
     Route: 042
     Dates: start: 20250305, end: 20250305
  7. ONDANSETRON [Suspect]
     Active Substance: ONDANSETRON
     Indication: Prophylaxis of nausea and vomiting
     Dosage: UNK (C1J15)
     Route: 042
     Dates: start: 20250219, end: 20250219
  8. ONDANSETRON [Suspect]
     Active Substance: ONDANSETRON
     Dosage: UNK (C2J8)
     Route: 042
     Dates: start: 20250305, end: 20250305
  9. POLARAMINE [Suspect]
     Active Substance: DEXCHLORPHENIRAMINE MALEATE
     Indication: Chemotherapy side effect prophylaxis
     Dosage: UNK (C1J15)
     Route: 042
     Dates: start: 20250219, end: 20250219
  10. POLARAMINE [Suspect]
     Active Substance: DEXCHLORPHENIRAMINE MALEATE
     Dosage: UNK (C2J8)
     Route: 042
     Dates: start: 20250305, end: 20250305

REACTIONS (5)
  - Hepatic cytolysis [Recovered/Resolved]
  - Urticaria [Recovered/Resolved]
  - Face oedema [Recovered/Resolved]
  - Off label use [Unknown]
  - Off label use [Unknown]

NARRATIVE: CASE EVENT DATE: 20250225
